FAERS Safety Report 21564019 (Version 2)
Quarter: 2024Q1

REPORT INFORMATION
  Report Type: Other
  Country: JP (occurrence: None)
  Receive Date: 20221108
  Receipt Date: 20240329
  Transmission Date: 20240410
  Serious: Yes (Death, Hospitalization)
  Sender: FDA-Public Use
  Company Number: JP-ROCHE-3214395

PATIENT
  Age: 47 Year
  Sex: Male
  Weight: 66 kg

DRUGS (11)
  1. RITUXAN [Suspect]
     Active Substance: RITUXIMAB
     Indication: Pemphigus
     Route: 041
     Dates: start: 20220118, end: 20220118
  2. RITUXAN [Suspect]
     Active Substance: RITUXIMAB
     Route: 041
     Dates: start: 20220208, end: 20220208
  3. RITUXAN [Suspect]
     Active Substance: RITUXIMAB
     Dosage: TWICE IN 4-WEEK INTERVALS
     Route: 042
  4. PREDONINE [Concomitant]
     Active Substance: PREDNISOLONE
     Indication: Pemphigus
     Route: 048
     Dates: start: 20200804
  5. MIZORIBINE [Concomitant]
     Active Substance: MIZORIBINE
     Indication: Pemphigus
     Route: 048
     Dates: start: 20211220, end: 20220223
  6. SULFAMETHOXAZOLE\TRIMETHOPRIM [Concomitant]
     Active Substance: SULFAMETHOXAZOLE\TRIMETHOPRIM
     Indication: Prophylaxis
     Route: 048
     Dates: start: 20200923
  7. DAYVIGO [Concomitant]
     Active Substance: LEMBOREXANT
     Indication: Insomnia
     Route: 048
     Dates: start: 20210830, end: 20220223
  8. BROTIZOLAM [Concomitant]
     Active Substance: BROTIZOLAM
     Indication: Insomnia
     Route: 048
     Dates: start: 20210924, end: 20220223
  9. RINDERON [Concomitant]
     Indication: Pemphigus
     Route: 049
     Dates: start: 20211014, end: 20220223
  10. VONOPRAZAN FUMARATE [Concomitant]
     Active Substance: VONOPRAZAN FUMARATE
     Indication: Prophylaxis
     Route: 048
     Dates: start: 20210917
  11. CYCLOSPORINE [Concomitant]
     Active Substance: CYCLOSPORINE

REACTIONS (2)
  - COVID-19 pneumonia [Fatal]
  - Acute respiratory distress syndrome [Fatal]

NARRATIVE: CASE EVENT DATE: 20220223
